FAERS Safety Report 22371725 (Version 1)
Quarter: 2023Q2

REPORT INFORMATION
  Report Type: Spontaneous
  Country: FR (occurrence: FR)
  Receive Date: 20230526
  Receipt Date: 20230526
  Transmission Date: 20230721
  Serious: Yes (Other)
  Sender: FDA-Public Use
  Company Number: FR-MYLANLABS-2023M1054361

PATIENT
  Age: 55 Year
  Sex: Male

DRUGS (3)
  1. METHOTREXATE [Suspect]
     Active Substance: METHOTREXATE
     Indication: Spondyloarthropathy
     Dosage: 15 MILLIGRAM, QW
     Route: 065
  2. CERTOLIZUMAB [Suspect]
     Active Substance: CERTOLIZUMAB
     Indication: Spondyloarthropathy
     Dosage: 200 MILLIGRAM, BIWEEKLY
     Route: 065
  3. CERTOLIZUMAB [Suspect]
     Active Substance: CERTOLIZUMAB
     Dosage: UNK, INITIALLY TREATMENT STOPPED AND LATER CONTINUED
     Route: 065

REACTIONS (3)
  - Leishmaniasis [Recovered/Resolved]
  - Arthritis [Recovered/Resolved]
  - Off label use [Unknown]
